FAERS Safety Report 9916451 (Version 1)
Quarter: 2014Q1

REPORT INFORMATION
  Report Type: Spontaneous
  Country: US (occurrence: None)
  Receive Date: 20140220
  Receipt Date: 20140220
  Transmission Date: 20141002
  Serious: Yes (Disabling, Other)
  Sender: FDA-Public Use
  Company Number: None

PATIENT
  Age: 54 Year
  Sex: Female
  Weight: 108.41 kg

DRUGS (2)
  1. CONCERTA [Suspect]
     Indication: ATTENTION DEFICIT/HYPERACTIVITY DISORDER
     Dosage: 2 1 PILLS IN AM/ 1@PM TAKEN BY MOUTH
     Route: 048
  2. CONCERTA [Suspect]
     Indication: ATTENTION DEFICIT/HYPERACTIVITY DISORDER
     Dosage: 2 1 PILLS IN AM/ 1@PM TAKEN BY MOUTH
     Route: 048

REACTIONS (4)
  - Depression [None]
  - Blood pressure abnormal [None]
  - Heart rate abnormal [None]
  - Drug ineffective [None]
